FAERS Safety Report 5490609-9 (Version None)
Quarter: 2007Q4

REPORT INFORMATION
  Report Type: 
  Country: None (occurrence: None)
  Receive Date: 20071019
  Receipt Date: 20071009
  Transmission Date: 20080405
  Serious: Yes (Other)
  Sender: FDA-Public Use
  Company Number: GB-ELI_LILLY_AND_COMPANY-GB200710002576

PATIENT
  Age: 14 Year
  Sex: Male
  Weight: 37.4 kg

DRUGS (1)
  1. STRATTERA [Suspect]
     Indication: ATTENTION DEFICIT/HYPERACTIVITY DISORDER
     Dosage: 50 MG, UNK
     Route: 048
     Dates: start: 20050601

REACTIONS (3)
  - ECZEMA NUMMULAR [None]
  - PALPITATIONS [None]
  - TACHYCARDIA [None]
